FAERS Safety Report 5134165-3 (Version None)
Quarter: 2006Q4

REPORT INFORMATION
  Report Type: 
  Country: None (occurrence: None)
  Receive Date: 20061024
  Receipt Date: 20060718
  Transmission Date: 20070319
  Serious: Yes (Life-Threatening)
  Sender: FDA-Public Use
  Company Number: JP-BOEHRINGER INGELHEIM PHARMACEUTICALS, INC.-2006-BP-08334NB

PATIENT
  Sex: Male
  Weight: 68.5 kg

DRUGS (3)
  1. MICARDIS [Suspect]
     Indication: ESSENTIAL HYPERTENSION
     Route: 048
     Dates: start: 20040723
  2. ANISTO (CARVEDILOL) [Concomitant]
     Indication: ESSENTIAL HYPERTENSION
     Route: 048
     Dates: start: 20040723, end: 20050315
  3. NOVOLIN N [Concomitant]
     Indication: DIABETES MELLITUS
     Route: 058
     Dates: start: 19981128

REACTIONS (1)
  - CEREBRAL HAEMORRHAGE [None]
